FAERS Safety Report 20547715 (Version 1)
Quarter: 2022Q1

REPORT INFORMATION
  Report Type: Spontaneous
  Country: US (occurrence: US)
  Receive Date: 20220303
  Receipt Date: 20220303
  Transmission Date: 20220423
  Serious: Yes (Hospitalization, Other)
  Sender: FDA-Public Use
  Company Number: US-AMGEN-USASP2022032936

PATIENT
  Age: 67 Year
  Sex: Male

DRUGS (4)
  1. PROLIA [Suspect]
     Active Substance: DENOSUMAB
     Indication: Osteoporosis
     Dosage: UNK
     Route: 065
  2. CALCIUM [Concomitant]
     Active Substance: CALCIUM
     Dosage: UNK, QD
     Route: 065
  3. ERGOCALCIFEROL [Concomitant]
     Active Substance: ERGOCALCIFEROL
     Dosage: UNK, QD
  4. COVID-19 VACCINE [Concomitant]

REACTIONS (9)
  - Spinal fracture [Unknown]
  - Impaired healing [Unknown]
  - Osteoporosis [Not Recovered/Not Resolved]
  - Therapeutic product effect incomplete [Unknown]
  - Spinal disorder [Unknown]
  - Nerve injury [Not Recovered/Not Resolved]
  - Back pain [Recovering/Resolving]
  - Arthralgia [Unknown]
  - Headache [Unknown]

NARRATIVE: CASE EVENT DATE: 20190101
